FAERS Safety Report 6585395-5 (Version None)
Quarter: 2010Q1

REPORT INFORMATION
  Report Type: 
  Country: None (occurrence: None)
  Receive Date: 20100217
  Receipt Date: 20100212
  Transmission Date: 20100710
  Serious: Yes (Other)
  Sender: FDA-Public Use
  Company Number: A0836736A

PATIENT
  Age: 76 Year
  Sex: Male

DRUGS (4)
  1. VERAMYST [Suspect]
     Dosage: 2SPR TWICE PER DAY
     Route: 045
     Dates: start: 20091211, end: 20091225
  2. ALLOPURINOL [Suspect]
     Indication: GOUT
     Dosage: 900MG PER DAY
     Route: 065
     Dates: start: 20091211, end: 20091225
  3. PLAVIX [Concomitant]
  4. UNKNOWN MEDICATION [Concomitant]

REACTIONS (2)
  - AGEUSIA [None]
  - ANOSMIA [None]
